FAERS Safety Report 5724057-0 (Version None)
Quarter: 2008Q2

REPORT INFORMATION
  Report Type: 
  Country: None (occurrence: None)
  Receive Date: 20080428
  Receipt Date: 20080414
  Transmission Date: 20081010
  Serious: Yes (Other)
  Sender: FDA-Public Use
  Company Number: 233530J08USA

PATIENT
  Age: 55 Year
  Sex: Male
  Weight: 81.6475 kg

DRUGS (11)
  1. REBIF [Suspect]
     Indication: MULTIPLE SCLEROSIS
     Dosage: 44 MCG, 3 IN 1 WEEKS, SUBCUTANEOUS
     Route: 058
     Dates: start: 20071001
  2. CITALOPRAM (CITALOPRAM /00582601/) [Concomitant]
  3. ABILIFY [Concomitant]
  4. TRAZODONE HCL [Concomitant]
  5. OXYBUTYNIN CHLORIDE (OXYBUTYNIN HYDROCHLORIDE) [Concomitant]
  6. LORTAB [Concomitant]
  7. LISINOPRIL [Concomitant]
  8. RANITIDINE (RANITIDINE /00550801/) [Concomitant]
  9. TEGRETOL [Concomitant]
  10. BACLOFEN [Concomitant]
  11. REGLAN (METOCLOPRAMIDE /00041901/) [Concomitant]

REACTIONS (4)
  - DIABETES MELLITUS [None]
  - HEPATIC ENZYME INCREASED [None]
  - INFLUENZA LIKE ILLNESS [None]
  - TREATMENT NONCOMPLIANCE [None]
